FAERS Safety Report 7267857-0 (Version None)
Quarter: 2011Q1

REPORT INFORMATION
  Report Type: 
  Country: None (occurrence: None)
  Receive Date: 20110201
  Receipt Date: 20110124
  Transmission Date: 20110831
  Serious: Yes (Hospitalization)
  Sender: FDA-Public Use
  Company Number: B0697209A

PATIENT
  Sex: Male

DRUGS (10)
  1. TROMBYL [Concomitant]
     Route: 065
  2. AMOXICILLIN AND CLAVULANATE POTASSIUM [Suspect]
     Route: 065
  3. FELODIPINE [Concomitant]
     Route: 065
  4. AMARYL [Concomitant]
     Route: 065
  5. OMEPRAZOLE [Concomitant]
     Route: 065
  6. INSULATARD [Concomitant]
     Route: 065
  7. ENALAPRIL MALEATE [Concomitant]
     Route: 065
  8. SIMVASTATIN [Concomitant]
     Route: 065
  9. BIOCLAVID [Concomitant]
     Route: 065
  10. METFORMIN HCL [Concomitant]
     Route: 065

REACTIONS (1)
  - DIARRHOEA HAEMORRHAGIC [None]
